FAERS Safety Report 5679814-6 (Version None)
Quarter: 2008Q1

REPORT INFORMATION
  Report Type: 
  Country: None (occurrence: None)
  Receive Date: 20080325
  Receipt Date: 20080319
  Transmission Date: 20080703
  Serious: No
  Sender: FDA-Public Use
  Company Number: US-ALLERGAN-0802286US

PATIENT
  Sex: Male

DRUGS (4)
  1. REFRESH TEARS [Suspect]
     Indication: DRY EYE
     Dosage: 1 GTT, PRN
     Route: 047
  2. REFRESH TEARS [Suspect]
  3. REFRESH TEARS [Suspect]
  4. OPTIVE [Concomitant]
     Indication: DRUG USE FOR UNKNOWN INDICATION
     Route: 047

REACTIONS (4)
  - CONJUNCTIVITIS ALLERGIC [None]
  - EYE IRRITATION [None]
  - EYE PAIN [None]
  - LACRIMATION INCREASED [None]
